FAERS Safety Report 9770778 (Version 1)
Quarter: 2013Q4

REPORT INFORMATION
  Report Type: Spontaneous
  Country: US (occurrence: US)
  Receive Date: 20131218
  Receipt Date: 20131218
  Transmission Date: 20140711
  Serious: No
  Sender: FDA-Public Use
  Company Number: US-PFIZER INC-2013361382

PATIENT
  Age: 83 Year
  Sex: Male

DRUGS (2)
  1. DEPO-MEDROL [Suspect]
     Indication: IMMUNISATION
     Dosage: 80 MG: 1.0 ML
     Route: 030
  2. DECADRON [Suspect]
     Dosage: UNK

REACTIONS (1)
  - Rash [Unknown]
